FAERS Safety Report 12111179 (Version 1)
Quarter: 2016Q1

REPORT INFORMATION
  Report Type: Spontaneous
  Country: US (occurrence: US)
  Receive Date: 20160224
  Receipt Date: 20160224
  Transmission Date: 20160526
  Serious: Yes (Other)
  Sender: FDA-Public Use
  Company Number: US-LANTHEUS-LMI-2015-00116

PATIENT
  Age: 56 Year
  Sex: Female
  Weight: 83 kg

DRUGS (16)
  1. XOPENEX [Concomitant]
     Active Substance: LEVALBUTEROL HYDROCHLORIDE
  2. REGLAN [Concomitant]
     Active Substance: METOCLOPRAMIDE HYDROCHLORIDE
  3. BACTRIM [Concomitant]
     Active Substance: SULFAMETHOXAZOLE\TRIMETHOPRIM
  4. RESTASIS [Concomitant]
     Active Substance: CYCLOSPORINE
  5. HUMALOG [Concomitant]
     Active Substance: INSULIN LISPRO
  6. CIPRO [Concomitant]
     Active Substance: CIPROFLOXACIN HYDROCHLORIDE
  7. SIMETHICONE (DIMETHICONE) [Concomitant]
     Active Substance: DIMETHICONE
  8. XANAX [Concomitant]
     Active Substance: ALPRAZOLAM
  9. COLACE [Concomitant]
     Active Substance: DOCUSATE SODIUM
  10. DURICEF [Concomitant]
     Active Substance: CEFADROXIL
  11. TOPROL XL [Concomitant]
     Active Substance: METOPROLOL SUCCINATE
  12. OXYCODONE [Concomitant]
     Active Substance: OXYCODONE
  13. DEFINITY [Suspect]
     Active Substance: PERFLUTREN
     Indication: ECHOCARDIOGRAM
     Dosage: 2 ML DEFINITY DILUTED IN 8 ML NORMAL SALINE
     Route: 040
     Dates: start: 20150305, end: 20150305
  14. IRON [Concomitant]
     Active Substance: IRON
  15. LANTUS [Concomitant]
     Active Substance: INSULIN GLARGINE
  16. PLAVIX [Concomitant]
     Active Substance: CLOPIDOGREL BISULFATE

REACTIONS (1)
  - Seizure like phenomena [Recovered/Resolved]

NARRATIVE: CASE EVENT DATE: 20150305
